FAERS Safety Report 6068714-8 (Version None)
Quarter: 2009Q1

REPORT INFORMATION
  Report Type: 
  Country: None (occurrence: None)
  Receive Date: 20090206
  Receipt Date: 20090129
  Transmission Date: 20090719
  Serious: Yes (Hospitalization)
  Sender: FDA-Public Use
  Company Number: B0557255A

PATIENT
  Age: 70 Year
  Sex: Male

DRUGS (1)
  1. SERETIDE [Suspect]
     Indication: DRUG USE FOR UNKNOWN INDICATION
     Route: 055
     Dates: start: 20081114

REACTIONS (5)
  - APHTHOUS STOMATITIS [None]
  - CHRONIC OBSTRUCTIVE PULMONARY DISEASE [None]
  - DERMATITIS ALLERGIC [None]
  - HYPERSENSITIVITY [None]
  - PNEUMONIA [None]
